FAERS Safety Report 8510864-8 (Version None)
Quarter: 2012Q3

REPORT INFORMATION
  Report Type: 
  Country: None (occurrence: None)
  Receive Date: 20120716
  Receipt Date: 20120703
  Transmission Date: 20120928
  Serious: Yes (Other)
  Sender: FDA-Public Use
  Company Number: TR-PAR PHARMACEUTICAL, INC-2012SCPR004489

PATIENT

DRUGS (3)
  1. PROPRANOLOL HYDROCHLORIDE [Suspect]
     Indication: PROPHYLAXIS
  2. PROPRANOLOL HYDROCHLORIDE [Suspect]
     Indication: SUPRAVENTRICULAR TACHYCARDIA
     Dosage: UNK, UNKNOWN
     Route: 065
  3. ADENOSINE [Concomitant]
     Indication: SUPRAVENTRICULAR TACHYCARDIA
     Dosage: UNK, UNKNOWN
     Route: 065

REACTIONS (1)
  - ACCELERATED IDIOVENTRICULAR RHYTHM [None]
